FAERS Safety Report 6253980-6 (Version None)
Quarter: 2009Q3

REPORT INFORMATION
  Report Type: 
  Country: None (occurrence: None)
  Receive Date: 20090702
  Receipt Date: 20090616
  Transmission Date: 20100115
  Serious: Yes (Other)
  Sender: FDA-Public Use
  Company Number: US-JNJFOC-20090605664

PATIENT
  Sex: Female
  Weight: 58.97 kg

DRUGS (4)
  1. ORTHO TRI-CYCLEN LO [Suspect]
     Indication: CONTRACEPTION
     Route: 048
  2. PROGRAF [Concomitant]
     Indication: RENAL TRANSPLANT
     Route: 048
  3. CELLCEPT [Concomitant]
     Indication: RENAL TRANSPLANT
     Route: 048
  4. ATENOLOL [Concomitant]
     Indication: BLOOD PRESSURE
     Route: 048

REACTIONS (1)
  - UTERINE LEIOMYOMA [None]
